FAERS Safety Report 4307440-X (Version None)
Quarter: 2004Q1

REPORT INFORMATION
  Report Type: 
  Country: None (occurrence: None)
  Receive Date: 20040226
  Receipt Date: 20040213
  Transmission Date: 20041129
  Serious: Yes (Hospitalization)
  Sender: FDA-Public Use
  Company Number: UK066551

PATIENT
  Age: 14 Day
  Sex: Female
  Weight: 1.7 kg

DRUGS (2)
  1. NEUPOGEN [Suspect]
     Dates: start: 20031223, end: 20031225
  2. CYTARABINE [Concomitant]

REACTIONS (3)
  - GAMMA-GLUTAMYLTRANSFERASE INCREASED [None]
  - HYPERBILIRUBINAEMIA NEONATAL [None]
  - JAUNDICE NEONATAL [None]
